FAERS Safety Report 13085099 (Version 1)
Quarter: 2017Q1

REPORT INFORMATION
  Report Type: Spontaneous
  Country: US (occurrence: US)
  Receive Date: 20170104
  Receipt Date: 20170104
  Transmission Date: 20170428
  Serious: No
  Sender: FDA-Public Use
  Company Number: US-ARBOR PHARMACEUTICALS, LLC-US-2016ARB000107

PATIENT
  Age: 15 Year
  Sex: Female
  Weight: 54.42 kg

DRUGS (1)
  1. SKLICE [Suspect]
     Active Substance: IVERMECTIN
     Indication: LICE INFESTATION
     Dosage: 0.5 %, SINGLE
     Route: 061
     Dates: start: 201601, end: 201601

REACTIONS (1)
  - Infestation [Unknown]

NARRATIVE: CASE EVENT DATE: 20160130
